FAERS Safety Report 4612564-3 (Version None)
Quarter: 2005Q1

REPORT INFORMATION
  Report Type: 
  Country: None (occurrence: None)
  Receive Date: 20050318
  Receipt Date: 20050307
  Transmission Date: 20050727
  Serious: Yes (Death)
  Sender: FDA-Public Use
  Company Number: US-JNJFOC-20050206160

PATIENT
  Age: 53 Year
  Sex: Male
  Weight: 80.74 kg

DRUGS (2)
  1. DURAGESIC-100 [Suspect]
     Indication: DRUG USE FOR UNKNOWN INDICATION
     Route: 062
  2. PHENYTOIN [Concomitant]

REACTIONS (11)
  - ACCIDENT [None]
  - ASPIRATION [None]
  - BRAIN OEDEMA [None]
  - CARDIOMEGALY [None]
  - CONVULSION [None]
  - DRUG TOXICITY [None]
  - HEAD INJURY [None]
  - INTERSTITIAL LUNG DISEASE [None]
  - LUNG DISORDER [None]
  - PULMONARY OEDEMA [None]
  - SUBDURAL HAEMATOMA [None]
